FAERS Safety Report 4820611-9 (Version None)
Quarter: 2005Q4

REPORT INFORMATION
  Report Type: 
  Country: None (occurrence: None)
  Receive Date: 20051104
  Receipt Date: 20051027
  Transmission Date: 20060501
  Serious: Yes (Life-Threatening, Hospitalization, Other)
  Sender: FDA-Public Use
  Company Number: US-GLAXOSMITHKLINE-A0580124A

PATIENT

DRUGS (3)
  1. REQUIP [Suspect]
     Indication: RESTLESS LEGS SYNDROME
     Route: 048
  2. RISPERDAL [Suspect]
     Indication: MEDICATION ERROR
  3. NO CONCURRENT MEDICATION [Concomitant]

REACTIONS (3)
  - ADVERSE EVENT [None]
  - INTUBATION [None]
  - MEDICATION ERROR [None]
